FAERS Safety Report 9684748 (Version 1)
Quarter: 2013Q4

REPORT INFORMATION
  Report Type: Spontaneous
  Country: FR (occurrence: FR)
  Receive Date: 20131112
  Receipt Date: 20131112
  Transmission Date: 20140711
  Serious: Yes (Hospitalization, Disabling)
  Sender: FDA-Public Use
  Company Number: FR-ABBVIE-13P-056-1168126-00

PATIENT
  Age: 49 Year
  Sex: Female

DRUGS (2)
  1. ENANTONE [Suspect]
     Indication: ENDOMETRIOSIS
     Route: 065
     Dates: end: 201202
  2. TRAMADOL [Concomitant]
     Indication: PRODUCT USED FOR UNKNOWN INDICATION

REACTIONS (2)
  - Cerebral ischaemia [Unknown]
  - Aphasia [Unknown]
